FAERS Safety Report 25026310 (Version 1)
Quarter: 2025Q1

REPORT INFORMATION
  Report Type: Spontaneous
  Country: US (occurrence: US)
  Receive Date: 20250301
  Receipt Date: 20250301
  Transmission Date: 20250408
  Serious: Yes (Hospitalization, Other)
  Sender: AUROBINDO
  Company Number: US-MLMSERVICE-20250207-PI400051-00054-1

PATIENT
  Age: 41 Year
  Sex: Male

DRUGS (3)
  1. TESTOSTERONE [Suspect]
     Active Substance: TESTOSTERONE
     Indication: Hormone replacement therapy
     Dosage: 125 MILLIGRAM, EVERY WEEK [LONG TERM]
     Route: 030
  2. TAMOXIFEN [Suspect]
     Active Substance: TAMOXIFEN
     Indication: Hormone replacement therapy
     Dosage: 5 MILLIGRAM, EVERY WEEK
     Route: 048
  3. ANASTROZOLE [Suspect]
     Active Substance: ANASTROZOLE
     Indication: Hormone replacement therapy
     Dosage: 0.25 MILLIGRAM, EVERY WEEK [LONG TERM]
     Route: 048

REACTIONS (6)
  - Acute myocardial infarction [Unknown]
  - Cardiac ventricular thrombosis [Unknown]
  - Pericarditis [Unknown]
  - Hypercoagulation [Unknown]
  - Overdose [Unknown]
  - Off label use [Unknown]
